FAERS Safety Report 18486158 (Version 1)
Quarter: 2020Q4

REPORT INFORMATION
  Report Type: Spontaneous
  Country: JP (occurrence: JP)
  Receive Date: 20201110
  Receipt Date: 20201110
  Transmission Date: 20210114
  Serious: Yes (Other)
  Sender: FDA-Public Use
  Company Number: JP-JNJFOC-20201037621

PATIENT
  Age: 78 Year
  Sex: Female
  Weight: 39 kg

DRUGS (1)
  1. REMINYL [Suspect]
     Active Substance: GALANTAMINE
     Indication: DEMENTIA ALZHEIMER^S TYPE
     Route: 048

REACTIONS (3)
  - Renal impairment [Unknown]
  - Off label use [Unknown]
  - Product use in unapproved indication [Unknown]
